FAERS Safety Report 12392888 (Version 1)
Quarter: 2016Q2

REPORT INFORMATION
  Report Type: Spontaneous
  Country: US (occurrence: None)
  Receive Date: 20160520
  Receipt Date: 20160520
  Transmission Date: 20160815
  Serious: Yes (Disabling)
  Sender: FDA-Public Use
  Company Number: None

PATIENT
  Age: 80 Year
  Sex: Female
  Weight: 67.13 kg

DRUGS (8)
  1. ASPIRIN. [Concomitant]
     Active Substance: ASPIRIN
  2. ALENDRONATE SODIUM. [Suspect]
     Active Substance: ALENDRONATE SODIUM
     Indication: OSTEOPOROSIS
     Dosage: 4 TABLETS ONCE A WEEK FULL GLASS WATER
     Route: 048
     Dates: start: 20160309, end: 20160504
  3. CAPECITABINE. [Concomitant]
     Active Substance: CAPECITABINE
  4. METOPROLOL XL [Concomitant]
     Active Substance: METOPROLOL SUCCINATE
  5. CALCIUM [Concomitant]
     Active Substance: CALCIUM
  6. ALENDRONATE SODIUM. [Suspect]
     Active Substance: ALENDRONATE SODIUM
     Indication: PAIN
     Dosage: 4 TABLETS ONCE A WEEK FULL GLASS WATER
     Route: 048
     Dates: start: 20160309, end: 20160504
  7. VITAMIN K [Concomitant]
     Active Substance: PHYTONADIONE
  8. DC3 [Concomitant]

REACTIONS (3)
  - Feeling abnormal [None]
  - Pain in extremity [None]
  - Arthralgia [None]

NARRATIVE: CASE EVENT DATE: 20160504
